FAERS Safety Report 21991695 (Version 4)
Quarter: 2023Q1

REPORT INFORMATION
  Report Type: Report from Study
  Country: US (occurrence: US)
  Receive Date: 20230214
  Receipt Date: 20230327
  Transmission Date: 20230418
  Serious: Yes (Other)
  Sender: FDA-Public Use
  Company Number: US-GILEAD-2023-0616628

PATIENT
  Age: 42 Year
  Sex: Male

DRUGS (3)
  1. AMBRISENTAN [Suspect]
     Active Substance: AMBRISENTAN
     Indication: Pulmonary arterial hypertension
     Dosage: 10 MG, QD
     Route: 065
     Dates: start: 20191017
  2. AMBRISENTAN [Suspect]
     Active Substance: AMBRISENTAN
     Dosage: 10 MG, QD
     Route: 065
     Dates: start: 20191017
  3. TYVASO [Concomitant]
     Active Substance: TREPROSTINIL
     Indication: Product used for unknown indication
     Dosage: UNK
     Route: 065
     Dates: start: 20230210

REACTIONS (14)
  - Cardiac failure [Unknown]
  - Syncope [Unknown]
  - Malaise [Not Recovered/Not Resolved]
  - Nausea [Not Recovered/Not Resolved]
  - Dysuria [Not Recovered/Not Resolved]
  - Micturition urgency [Not Recovered/Not Resolved]
  - Headache [Unknown]
  - Oropharyngeal pain [Unknown]
  - Abdominal discomfort [Unknown]
  - Flushing [Recovered/Resolved]
  - Lethargy [Recovered/Resolved]
  - Abdominal pain upper [Recovered/Resolved]
  - Product dose omission issue [Unknown]
  - Presyncope [Unknown]

NARRATIVE: CASE EVENT DATE: 20230219
